FAERS Safety Report 10235230 (Version 1)
Quarter: 2014Q2

REPORT INFORMATION
  Report Type: Spontaneous
  Country: ES (occurrence: ES)
  Receive Date: 20140613
  Receipt Date: 20140613
  Transmission Date: 20141212
  Serious: Yes (Hospitalization, Other)
  Sender: FDA-Public Use
  Company Number: ES-UCBSA-2014000284

PATIENT
  Age: 38 Year
  Sex: Female
  Weight: 73 kg

DRUGS (4)
  1. CIMZIA [Suspect]
     Dosage: 200 MG, EV 2 WEEKS(QOW)
     Route: 058
     Dates: start: 20131130, end: 20140516
  2. ARAVA [Concomitant]
     Dosage: 10 MG, ONCE DAILY (QD)
     Route: 048
  3. ARCOXIA [Concomitant]
     Dosage: 90 MG, ONCE DAILY (QD)
     Route: 048
  4. TIRODRIL [Concomitant]
     Dosage: 5 MG, 2X/DAY (BID)
     Route: 048
     Dates: start: 2012

REACTIONS (1)
  - Hypersensitivity [Recovered/Resolved]
